FAERS Safety Report 9130746 (Version 2)
Quarter: 2013Q1

REPORT INFORMATION
  Report Type: Report from Study
  Country: DE (occurrence: DE)
  Receive Date: 20130301
  Receipt Date: 20130307
  Transmission Date: 20140127
  Serious: Yes (Hospitalization, Other)
  Sender: FDA-Public Use
  Company Number: PHHY2013DE020170

PATIENT
  Sex: Female
  Weight: 96.5 kg

DRUGS (6)
  1. EXTAVIA [Suspect]
     Indication: MULTIPLE SCLEROSIS
     Dosage: 1 ML, QOD
     Route: 058
     Dates: start: 20121031, end: 20121206
  2. EXTAVIA [Suspect]
     Dosage: 1 ML, QOD
     Route: 058
     Dates: start: 20121208
  3. L-THYROXINE [Concomitant]
     Indication: SUPPLEMENTATION THERAPY
     Dosage: 125 UG, QD
     Route: 048
     Dates: start: 198912
  4. PARACETAMOL [Concomitant]
     Indication: PAIN
     Dosage: 500 MG, PRN
     Route: 048
  5. CIPRALEX [Concomitant]
     Dosage: 20 MG, UNK
     Dates: start: 201202
  6. RANITIC [Concomitant]
     Dosage: 150 MG, ONCE IN THE EVENING

REACTIONS (7)
  - Post procedural pulmonary embolism [Recovered/Resolved]
  - Cerebrovascular accident [Recovered/Resolved with Sequelae]
  - Hemiparesis [Recovered/Resolved with Sequelae]
  - Speech disorder [Recovered/Resolved with Sequelae]
  - Mental impairment [Unknown]
  - Dysphagia [Recovered/Resolved with Sequelae]
  - Malaise [Recovering/Resolving]
